FAERS Safety Report 6768073-9 (Version None)
Quarter: 2010Q2

REPORT INFORMATION
  Report Type: 
  Country: None (occurrence: None)
  Receive Date: 20100614
  Receipt Date: 20100607
  Transmission Date: 20101027
  Serious: No
  Sender: FDA-Public Use
  Company Number: US-JNJFOC-20100602648

PATIENT
  Age: 45 Year
  Sex: Male
  Weight: 91.17 kg

DRUGS (8)
  1. FENTANYL [Suspect]
     Indication: OESOPHAGEAL CARCINOMA
     Route: 062
  2. ZOFRAN [Concomitant]
     Indication: NAUSEA
     Route: 048
  3. LEVEMIR [Concomitant]
     Indication: DIABETES MELLITUS
     Route: 058
  4. NOVOLOG [Concomitant]
     Indication: DIABETES MELLITUS
     Route: 058
  5. CORGARD [Concomitant]
     Indication: HYPERTENSION
     Route: 048
  6. LISINOPRIL [Concomitant]
     Indication: HYPERTENSION
     Route: 048
  7. FLEXERIL [Concomitant]
     Indication: MUSCLE RELAXANT THERAPY
     Route: 048
  8. ULTRAM [Concomitant]
     Indication: PAIN
     Dosage: 3 TABLETS OF 50MG ONCE DAILY
     Route: 048

REACTIONS (3)
  - INADEQUATE ANALGESIA [None]
  - PRODUCT ADHESION ISSUE [None]
  - WRONG TECHNIQUE IN DRUG USAGE PROCESS [None]
